FAERS Safety Report 15899931 (Version 1)
Quarter: 2019Q1

REPORT INFORMATION
  Report Type: Spontaneous
  Country: US (occurrence: US)
  Receive Date: 20190109
  Receipt Date: 20190109
  Transmission Date: 20190417
  Serious: No
  Sender: FDA-Public Use
  Company Number: None

PATIENT
  Age: 11 Year
  Sex: Female

DRUGS (1)
  1. EPOGEN [Suspect]
     Active Substance: ERYTHROPOIETIN
     Dates: start: 20171224

REACTIONS (2)
  - Intercepted product preparation error [None]
  - Product dispensing error [None]

NARRATIVE: CASE EVENT DATE: 20181011
